FAERS Safety Report 18926026 (Version 1)
Quarter: 2021Q1

REPORT INFORMATION
  Report Type: Other
  Country: US (occurrence: US)
  Receive Date: 20210223
  Receipt Date: 20210223
  Transmission Date: 20210420
  Serious: Yes (Hospitalization)
  Sender: FDA-Public Use
  Company Number: US-INTERCEPT-PM2021000408

PATIENT
  Sex: Female
  Weight: 78.01 kg

DRUGS (24)
  1. LYRICA [Concomitant]
     Active Substance: PREGABALIN
  2. VALTREX [Concomitant]
     Active Substance: VALACYCLOVIR HYDROCHLORIDE
  3. NEXIUM I.V. [Concomitant]
     Active Substance: ESOMEPRAZOLE SODIUM
  4. OCALIVA [Suspect]
     Active Substance: OBETICHOLIC ACID
     Indication: PRIMARY BILIARY CHOLANGITIS
     Dosage: 5 MILLIGRAM, QD
     Route: 048
     Dates: start: 20160928
  5. URSO [Concomitant]
     Active Substance: URSODIOL
  6. ALBUMIN (HUMAN) [Concomitant]
     Active Substance: ALBUMIN HUMAN
  7. BENEFIBER [Concomitant]
     Active Substance: STARCH, WHEAT
  8. NORTRIPTYLINE HCL [Concomitant]
     Active Substance: NORTRIPTYLINE HYDROCHLORIDE
  9. OCALIVA [Suspect]
     Active Substance: OBETICHOLIC ACID
     Dosage: 5 MILLIGRAM, QD
     Route: 048
     Dates: start: 2017
  10. PREMARIN [Concomitant]
     Active Substance: ESTROGENS, CONJUGATED
  11. POTASSIUM [Concomitant]
     Active Substance: POTASSIUM
  12. VITAMIN D3 [Concomitant]
     Active Substance: CHOLECALCIFEROL
  13. OCALIVA [Suspect]
     Active Substance: OBETICHOLIC ACID
     Dosage: 5 MILLIGRAM, 3X/WK
     Route: 048
  14. LEVSIN [Concomitant]
     Active Substance: HYOSCYAMINE SULFATE
  15. LIPITOR [Concomitant]
     Active Substance: ATORVASTATIN CALCIUM
  16. COLACE [Concomitant]
     Active Substance: DOCUSATE SODIUM
  17. VITAMIN C [Concomitant]
     Active Substance: ASCORBIC ACID
  18. GLUCERNA [Concomitant]
     Active Substance: AMINO ACIDS\DEXTROSE\ELECTROLYTES NOS\SOYBEAN OIL\VITAMINS
  19. OCALIVA [Suspect]
     Active Substance: OBETICHOLIC ACID
     Dosage: 5 MICROGRAM, 2X/WK
     Route: 048
  20. LASIX [Concomitant]
     Active Substance: FUROSEMIDE
  21. CALCIUM + D3 [CALCIUM;COLECALCIFEROL] [Concomitant]
     Active Substance: CALCIUM\CHOLECALCIFEROL
  22. OCALIVA [Suspect]
     Active Substance: OBETICHOLIC ACID
     Dosage: 5 MILLIGRAM, QW
     Route: 048
  23. OCALIVA [Suspect]
     Active Substance: OBETICHOLIC ACID
     Dosage: 5 MICROGRAM, 3X/WK
     Route: 048
  24. XIFAXAN [Concomitant]
     Active Substance: RIFAXIMIN

REACTIONS (2)
  - Ammonia abnormal [Unknown]
  - Therapy interrupted [Recovered/Resolved]

NARRATIVE: CASE EVENT DATE: 2020
